FAERS Safety Report 9218884 (Version 2)
Quarter: 2013Q2

REPORT INFORMATION
  Report Type: Spontaneous
  Country: US (occurrence: US)
  Receive Date: 20130409
  Receipt Date: 20130501
  Transmission Date: 20140414
  Serious: No
  Sender: FDA-Public Use
  Company Number: US-JNJFOC-20130317461

PATIENT
  Age: 47 Year
  Sex: Female
  Weight: 72.58 kg

DRUGS (7)
  1. DURAGESIC [Suspect]
     Indication: PAIN
     Route: 062
     Dates: start: 201302
  2. METHYLPHENIDATE [Concomitant]
     Indication: REVERSAL OF SEDATION
     Route: 048
     Dates: start: 2012
  3. SYNTHROID [Concomitant]
     Indication: HYPOTHYROIDISM
     Route: 048
     Dates: start: 2005
  4. ATIVAN [Concomitant]
     Indication: FEELING OF RELAXATION
     Route: 048
     Dates: start: 2008
  5. NEXIUM [Concomitant]
     Indication: GASTRIC DISORDER
     Route: 065
     Dates: start: 2012
  6. DILAUDID [Concomitant]
     Indication: PAIN
     Route: 048
     Dates: start: 2011
  7. BENADRYL [Concomitant]
     Indication: PRODUCT USED FOR UNKNOWN INDICATION
     Route: 065

REACTIONS (3)
  - Wrong technique in drug usage process [Recovered/Resolved]
  - Pruritus [Recovered/Resolved]
  - Product quality issue [Unknown]
